FAERS Safety Report 7887874-7 (Version None)
Quarter: 2011Q4

REPORT INFORMATION
  Report Type: 
  Country: None (occurrence: None)
  Receive Date: 20111103
  Receipt Date: 20111103
  Transmission Date: 20120403
  Serious: Yes (Other)
  Sender: FDA-Public Use
  Company Number: None

PATIENT
  Age: 23 Year
  Sex: Male
  Weight: 72.574 kg

DRUGS (1)
  1. DUREZOL [Suspect]
     Indication: IRITIS
     Dosage: 1 DROP
     Route: 047
     Dates: start: 20111027, end: 20111030

REACTIONS (3)
  - GLARE [None]
  - INTRAOCULAR PRESSURE INCREASED [None]
  - VISION BLURRED [None]
